FAERS Safety Report 5384334-2 (Version None)
Quarter: 2007Q3

REPORT INFORMATION
  Report Type: 
  Country: None (occurrence: None)
  Receive Date: 20070710
  Receipt Date: 20060914
  Transmission Date: 20080115
  Serious: Yes (Hospitalization, Other)
  Sender: FDA-Public Use
  Company Number: 2006-02106

PATIENT
  Age: 72 Year
  Sex: Male
  Weight: 102.5 kg

DRUGS (6)
  1. VELCADE [Suspect]
     Indication: MULTIPLE MYELOMA
     Dosage: 1.30 MG/M2, INTRAVENOUS
     Route: 042
     Dates: start: 20060519, end: 20060731
  2. VELCADE [Suspect]
  3. VELCADE [Suspect]
  4. SENOKOT [Concomitant]
  5. REGLAN [Concomitant]
  6. ZOMETA [Concomitant]

REACTIONS (1)
  - ILEUS [None]
